APPROVED DRUG PRODUCT: HYDROCODONE BITARTRATE AND ACETAMINOPHEN
Active Ingredient: ACETAMINOPHEN; HYDROCODONE BITARTRATE
Strength: 325MG;10MG
Dosage Form/Route: TABLET;ORAL
Application: A040248 | Product #002
Applicant: CHARTWELL SCHEDULED LLC
Approved: Apr 28, 2000 | RLD: No | RS: No | Type: DISCN